FAERS Safety Report 13115712 (Version 2)
Quarter: 2017Q1

REPORT INFORMATION
  Report Type: Spontaneous
  Country: US (occurrence: US)
  Receive Date: 20170114
  Receipt Date: 20170118
  Transmission Date: 20170428
  Serious: No
  Sender: FDA-Public Use
  Company Number: US-009507513-1612USA014111

PATIENT
  Sex: Female
  Weight: 79.37 kg

DRUGS (1)
  1. NEXPLANON [Suspect]
     Active Substance: ETONOGESTREL
     Indication: CONTRACEPTION
     Dosage: 3 YEAR IMPLANT, IN THE LEFT ARM
     Route: 059
     Dates: start: 20160115

REACTIONS (4)
  - Hypoaesthesia [Unknown]
  - Limb discomfort [Unknown]
  - Muscle spasms [Unknown]
  - Menstruation delayed [Unknown]

NARRATIVE: CASE EVENT DATE: 2016
